FAERS Safety Report 16639147 (Version 2)
Quarter: 2020Q2

REPORT INFORMATION
  Report Type: Spontaneous
  Country: US (occurrence: US)
  Receive Date: 20190726
  Receipt Date: 20200528
  Transmission Date: 20200713
  Serious: No
  Sender: FDA-Public Use
  Company Number: US-TEVA-2019-US-1082430

PATIENT

DRUGS (1)
  1. LIDOCAINE TEVA [Suspect]
     Active Substance: LIDOCAINE
     Dosage: 2 PATCHES A DAY
     Route: 062

REACTIONS (1)
  - Product use in unapproved indication [Unknown]
